FAERS Safety Report 10285406 (Version 1)
Quarter: 2014Q3

REPORT INFORMATION
  Report Type: Spontaneous
  Country: GB (occurrence: GB)
  Receive Date: 20140708
  Receipt Date: 20140708
  Transmission Date: 20150326
  Serious: Yes (Other)
  Sender: FDA-Public Use
  Company Number: GB-ABBVIE-14P-167-1256702-00

PATIENT
  Sex: Female

DRUGS (1)
  1. EPILIM [Suspect]
     Active Substance: VALPROATE SODIUM
     Indication: TEMPORAL LOBE EPILEPSY

REACTIONS (4)
  - Somnambulism [Unknown]
  - Convulsion [Unknown]
  - Drug ineffective [Unknown]
  - Abnormal dreams [Unknown]
